FAERS Safety Report 23241143 (Version 1)
Quarter: 2023Q4

REPORT INFORMATION
  Report Type: Spontaneous
  Country: US (occurrence: US)
  Receive Date: 20231129
  Receipt Date: 20231129
  Transmission Date: 20240110
  Serious: Yes (Hospitalization)
  Sender: FDA-Public Use
  Company Number: US-BEH-2023165669

PATIENT
  Age: 9 Year
  Sex: Male

DRUGS (3)
  1. HUMATE-P [Suspect]
     Active Substance: HUMAN COAGULATION FACTOR VIII/VON WILLEBRAND FACTOR COMPLEX
     Indication: Von Willebrand^s disease
     Dosage: UNK
     Route: 042
     Dates: start: 202311
  2. HUMATE-P [Suspect]
     Active Substance: HUMAN COAGULATION FACTOR VIII/VON WILLEBRAND FACTOR COMPLEX
     Indication: Subdural haematoma
     Dosage: 1125-1500 RCOF UNITS
     Route: 042
     Dates: start: 20231111
  3. HUMATE-P [Suspect]
     Active Substance: HUMAN COAGULATION FACTOR VIII/VON WILLEBRAND FACTOR COMPLEX
     Dosage: 1125-1500 RCOF UNITS
     Route: 042
     Dates: start: 20231112

REACTIONS (2)
  - Subdural haematoma [Unknown]
  - Haemorrhage [Unknown]

NARRATIVE: CASE EVENT DATE: 20230101
